FAERS Safety Report 8169244-X (Version None)
Quarter: 2012Q1

REPORT INFORMATION
  Report Type: 
  Country: None (occurrence: None)
  Receive Date: 20120228
  Receipt Date: 20120221
  Transmission Date: 20120608
  Serious: Yes (Life-Threatening)
  Sender: FDA-Public Use
  Company Number: AU-ASTRAZENECA-2012SE11902

PATIENT
  Age: 39 Year
  Sex: Male

DRUGS (4)
  1. FENTANYL [Suspect]
     Route: 065
  2. DEXMEDETOMIDINE HYDROCHLORIDE [Suspect]
     Dosage: 1680 UG
     Route: 065
  3. PROPOFOL [Suspect]
     Route: 042
  4. OCTREOTIDE ACETATE [Concomitant]

REACTIONS (2)
  - PULSELESS ELECTRICAL ACTIVITY [None]
  - BLOOD PRESSURE IMMEASURABLE [None]
